FAERS Safety Report 5731270-5 (Version None)
Quarter: 2008Q2

REPORT INFORMATION
  Report Type: 
  Country: None (occurrence: None)
  Receive Date: 20080505
  Receipt Date: 20080423
  Transmission Date: 20081010
  Serious: Yes (Other)
  Sender: FDA-Public Use
  Company Number: 2008AL002507

PATIENT
  Age: 74 Year
  Sex: Male

DRUGS (2)
  1. DICLOFENAC SODIUM [Suspect]
     Indication: RHEUMATOID ARTHRITIS
     Dosage: 75 MG; PRN; PO
     Route: 048
     Dates: start: 20030101, end: 20080331
  2. CLOPIDOGREL [Concomitant]

REACTIONS (9)
  - ARTHRITIS [None]
  - BALANCE DISORDER [None]
  - CONDITION AGGRAVATED [None]
  - DIARRHOEA [None]
  - DIPLOPIA [None]
  - DRUG INEFFECTIVE [None]
  - DYSARTHRIA [None]
  - PROSTATIC DISORDER [None]
  - TRANSIENT ISCHAEMIC ATTACK [None]
